FAERS Safety Report 5540880-X (Version None)
Quarter: 2007Q4

REPORT INFORMATION
  Report Type: 
  Country: None (occurrence: None)
  Receive Date: 20071129
  Receipt Date: 20070529
  Transmission Date: 20080405
  Serious: Yes (Hospitalization)
  Sender: FDA-Public Use
  Company Number: US200705002887

PATIENT
  Age: 17 Year
  Sex: Male

DRUGS (3)
  1. ZYPREXA [Suspect]
     Indication: SCHIZOAFFECTIVE DISORDER
     Dosage: 20 MG, DAILY (1/D), ORAL; 20 MG, DAILY (1/D), ORAL
     Route: 048
     Dates: start: 20060201, end: 20070101
  2. ZYPREXA [Suspect]
     Indication: SCHIZOAFFECTIVE DISORDER
     Dosage: 20 MG, DAILY (1/D), ORAL; 20 MG, DAILY (1/D), ORAL
     Route: 048
     Dates: start: 20070101
  3. EFFEXOR XR [Concomitant]

REACTIONS (1)
  - SUICIDE ATTEMPT [None]
